FAERS Safety Report 21283444 (Version 1)
Quarter: 2022Q3

REPORT INFORMATION
  Report Type: Spontaneous
  Country: AU (occurrence: AU)
  Receive Date: 20220901
  Receipt Date: 20220901
  Transmission Date: 20221027
  Serious: Yes (Life-Threatening, Hospitalization, Other)
  Sender: FDA-Public Use
  Company Number: AU-PFIZER INC-PV202200054164

PATIENT
  Age: 53 Year
  Sex: Female

DRUGS (8)
  1. MYLOTARG [Suspect]
     Active Substance: GEMTUZUMAB OZOGAMICIN
     Indication: Acute myeloid leukaemia
     Dosage: 3 MG/M2, DAYS 4 AND 7
     Dates: start: 202011
  2. MYLOTARG [Suspect]
     Active Substance: GEMTUZUMAB OZOGAMICIN
     Dosage: 3 MG/M2 INFUSED OVER 2 HOURS ON DAY 1
  3. MYLOTARG [Suspect]
     Active Substance: GEMTUZUMAB OZOGAMICIN
     Dosage: 3MG/M2 INFUSED OVER 2 HRS ON DAY 1
  4. CYTARABINE [Suspect]
     Active Substance: CYTARABINE
     Indication: Acute myeloid leukaemia
     Dosage: 7+3 (CYTARABINE + IDARUBICIN)
     Dates: start: 202011
  5. CYTARABINE [Suspect]
     Active Substance: CYTARABINE
     Dosage: 3 G/M2 BD, D1, 3, 5 WITH GEMTUZUMAB OZOGAMICIN
  6. CYTARABINE [Suspect]
     Active Substance: CYTARABINE
     Dosage: 3 G/M2 BD, D1, 3, 5 WITH GEMTUZUMAB OZOGAMICIN
  7. CYTARABINE [Suspect]
     Active Substance: CYTARABINE
     Dosage: 2.5 G/M2 BD D1, 3, 5 WITHOUT
  8. IDARUBICIN HYDROCHLORIDE [Suspect]
     Active Substance: IDARUBICIN HYDROCHLORIDE
     Indication: Acute myeloid leukaemia
     Dosage: 7+3 (CYTARABINE + IDARUBICIN)
     Dates: start: 202011

REACTIONS (11)
  - Febrile neutropenia [Recovered/Resolved]
  - Enterobacter sepsis [Recovered/Resolved]
  - Device related sepsis [Recovered/Resolved]
  - Neutropenic colitis [Unknown]
  - Megacolon [Unknown]
  - Epistaxis [Unknown]
  - Haemorrhage [Unknown]
  - Iron overload [Unknown]
  - Liver function test abnormal [Unknown]
  - Anaemia [Unknown]
  - Leukocytosis [Unknown]
